FAERS Safety Report 14471774 (Version 3)
Quarter: 2025Q4

REPORT INFORMATION
  Report Type: Other
  Country: EU (occurrence: EU)
  Receive Date: 20180131
  Receipt Date: 20251021
  Transmission Date: 20260118
  Serious: Yes (Hospitalization, Other)
  Sender: INCYTE
  Company Number: None

PATIENT
  Age: 53 Year

DRUGS (1)
  1. RUXOLITINIB [Suspect]
     Active Substance: RUXOLITINIB
     Indication: Graft versus host disease
     Dosage: UNK

REACTIONS (4)
  - Retinal detachment [Recovered/Resolved]
  - Uveitis [Recovered/Resolved]
  - Choroiditis [Recovered/Resolved]
  - Corneal perforation [Recovered/Resolved]
